FAERS Safety Report 4719302-4 (Version None)
Quarter: 2005Q3

REPORT INFORMATION
  Report Type: 
  Country: None (occurrence: None)
  Receive Date: 20050721
  Receipt Date: 20041011
  Transmission Date: 20060218
  Serious: No
  Sender: FDA-Public Use
  Company Number: 0588

PATIENT
  Age: 19 Year
  Sex: Female

DRUGS (1)
  1. MALARONE [Suspect]
     Indication: MALARIA PROPHYLAXIS
     Route: 048

REACTIONS (1)
  - DRUG INEFFECTIVE [None]
